FAERS Safety Report 9310509 (Version 1)
Quarter: 2013Q2

REPORT INFORMATION
  Report Type: Report from Study
  Country: AZ (occurrence: AZ)
  Receive Date: 20130527
  Receipt Date: 20130527
  Transmission Date: 20140414
  Serious: Yes (Death, Hospitalization, Other)
  Sender: FDA-Public Use
  Company Number: PHHY2013AZ049351

PATIENT
  Age: 42 Year
  Sex: Male

DRUGS (4)
  1. GLIVEC [Suspect]
     Indication: CHRONIC MYELOID LEUKAEMIA
     Dosage: 800 MG
  2. GLIVEC [Suspect]
     Dosage: 400 MG
     Dates: start: 20060306
  3. GLIVEC [Suspect]
     Dosage: 600 MG, DAILY
  4. HYDREA [Concomitant]
     Indication: CHRONIC MYELOID LEUKAEMIA
     Dosage: UNK UKN, UNK

REACTIONS (5)
  - Cardiac failure [Fatal]
  - Blast crisis in myelogenous leukaemia [Fatal]
  - Drug resistance [Unknown]
  - Chronic myeloid leukaemia [Unknown]
  - Treatment failure [Unknown]
